FAERS Safety Report 23049464 (Version 1)
Quarter: 2023Q4

REPORT INFORMATION
  Report Type: Spontaneous
  Country: US (occurrence: None)
  Receive Date: 20231006
  Receipt Date: 20231006
  Transmission Date: 20240110
  Serious: No
  Sender: FDA-Public Use
  Company Number: None

PATIENT
  Age: 34 Year
  Sex: Female
  Weight: 126.9 kg

DRUGS (5)
  1. CLOMID [Suspect]
     Active Substance: CLOMIPHENE CITRATE
     Indication: Infertility
     Dosage: FREQUENCY : DAILY;?
     Route: 048
     Dates: start: 20230923, end: 20230927
  2. VITAMIN C [Concomitant]
     Active Substance: ASCORBIC ACID
  3. MENAQUINONE 6 [Concomitant]
     Active Substance: MENAQUINONE 6
  4. VITAMIN D3 [Concomitant]
     Active Substance: CHOLECALCIFEROL
  5. VITAMINS [Concomitant]
     Active Substance: VITAMINS

REACTIONS (6)
  - Arthralgia [None]
  - Pain in extremity [None]
  - Abdominal distension [None]
  - Abdominal discomfort [None]
  - Hot flush [None]
  - Dizziness [None]

NARRATIVE: CASE EVENT DATE: 20230930
